FAERS Safety Report 5441345-6 (Version None)
Quarter: 2007Q3

REPORT INFORMATION
  Report Type: 
  Country: None (occurrence: None)
  Receive Date: 20070903
  Receipt Date: 20070829
  Transmission Date: 20080115
  Serious: Yes (Death, Other)
  Sender: FDA-Public Use
  Company Number: PHBS2007SE14368

PATIENT
  Age: 62 Year
  Sex: Female

DRUGS (4)
  1. ZOMETA [Suspect]
     Indication: BREAST CANCER METASTATIC
     Dates: start: 20030101, end: 20070101
  2. ALVEDON [Concomitant]
  3. CAELYX [Concomitant]
  4. TRADOLAN [Concomitant]

REACTIONS (2)
  - GENERAL PHYSICAL HEALTH DETERIORATION [None]
  - OSTEONECROSIS [None]
